FAERS Safety Report 14364635 (Version 1)
Quarter: 2018Q1

REPORT INFORMATION
  Report Type: Spontaneous
  Country: US (occurrence: US)
  Receive Date: 20180106
  Receipt Date: 20180106
  Transmission Date: 20180509
  Serious: Yes (Other)
  Sender: FDA-Public Use
  Company Number: None

PATIENT
  Age: 18 Year
  Sex: Female
  Weight: 54.45 kg

DRUGS (2)
  1. CIPROFLAXIN [Suspect]
     Active Substance: CIPROFLOXACIN
     Indication: KIDNEY INFECTION
     Dosage: ?          QUANTITY:3 TABLET(S);?
     Route: 048
     Dates: start: 20180102, end: 20180103
  2. CIPROFLAXIN [Suspect]
     Active Substance: CIPROFLOXACIN
     Indication: PNEUMONIA
     Dosage: ?          QUANTITY:3 TABLET(S);?
     Route: 048
     Dates: start: 20180102, end: 20180103

REACTIONS (8)
  - Haemoglobin increased [None]
  - Laceration [None]
  - Muscle spasms [None]
  - Loss of consciousness [None]
  - White blood cell count increased [None]
  - Red blood cell count increased [None]
  - Lymphadenopathy [None]
  - Movement disorder [None]

NARRATIVE: CASE EVENT DATE: 20180103
